FAERS Safety Report 26163027 (Version 1)
Quarter: 2025Q4

REPORT INFORMATION
  Report Type: Spontaneous
  Country: JP (occurrence: JP)
  Receive Date: 20251216
  Receipt Date: 20251216
  Transmission Date: 20260118
  Serious: Yes (Other)
  Sender: OTSUKA
  Company Number: JP-MMM-Otsuka-7PM54BRI

PATIENT
  Age: 90 Year
  Sex: Male

DRUGS (4)
  1. REXULTI [Suspect]
     Active Substance: BREXPIPRAZOLE
     Indication: Dementia Alzheimer^s type
     Dosage: 1 MG, DAILY
     Route: 061
  2. REXULTI [Suspect]
     Active Substance: BREXPIPRAZOLE
     Indication: Restlessness
     Dosage: 0.5 MG, DAILY
     Route: 061
  3. RIVOTRIL [Concomitant]
     Active Substance: CLONAZEPAM
     Indication: Restlessness
     Dosage: UNK
     Route: 065
  4. RIVOTRIL [Concomitant]
     Active Substance: CLONAZEPAM
     Indication: Dementia Alzheimer^s type

REACTIONS (3)
  - Dementia Alzheimer^s type [Not Recovered/Not Resolved]
  - Condition aggravated [Not Recovered/Not Resolved]
  - Drug ineffective [Not Recovered/Not Resolved]
